FAERS Safety Report 4762717-9 (Version None)
Quarter: 2005Q3

REPORT INFORMATION
  Report Type: 
  Country: None (occurrence: None)
  Receive Date: 20050907
  Receipt Date: 20050901
  Transmission Date: 20060218
  Serious: Yes (Hospitalization)
  Sender: FDA-Public Use
  Company Number: DE-ROCHE-416278

PATIENT
  Age: 48 Year
  Sex: Female

DRUGS (4)
  1. PEGASYS [Suspect]
     Indication: HEPATITIS C
     Route: 058
  2. COPEGUS [Suspect]
     Indication: HEPATITIS C
     Route: 048
  3. AMANTADINE HCL [Suspect]
     Indication: HEPATITIS C
     Route: 048
  4. INSIDON [Concomitant]

REACTIONS (1)
  - PANCYTOPENIA [None]
